FAERS Safety Report 21543284 (Version 2)
Quarter: 2023Q2

REPORT INFORMATION
  Report Type: Spontaneous
  Country: US (occurrence: US)
  Receive Date: 20221102
  Receipt Date: 20230424
  Transmission Date: 20230721
  Serious: No
  Sender: FDA-Public Use
  Company Number: US-SA-SAC20221101002089

PATIENT
  Sex: Female

DRUGS (1)
  1. DUPIXENT [Suspect]
     Active Substance: DUPILUMAB
     Dosage: 300MG, FREQUENCY: OTHER
     Route: 058

REACTIONS (6)
  - Injection site bruising [Unknown]
  - Injection site pain [Unknown]
  - Product preparation error [Unknown]
  - Nightmare [Unknown]
  - Anxiety [Unknown]
  - Condition aggravated [Not Recovered/Not Resolved]
